FAERS Safety Report 10155925 (Version 1)
Quarter: 2014Q2

REPORT INFORMATION
  Report Type: Spontaneous
  Country: GR (occurrence: GR)
  Receive Date: 20140506
  Receipt Date: 20140506
  Transmission Date: 20141212
  Serious: Yes (Life-Threatening, Other)
  Sender: FDA-Public Use
  Company Number: PHHY2014GR053873

PATIENT
  Age: 59 Year
  Sex: Male

DRUGS (8)
  1. DICLOFENAC [Suspect]
     Indication: BACK PAIN
     Dosage: 150 MG, PER DAY
  2. TELMISARTAN, HYDROCHLOROTHIAZIDE [Suspect]
  3. CLOPIDOGREL [Suspect]
  4. SPIRONOLACTONE [Suspect]
     Dosage: 25 MG PER DAY
  5. CARVEDILOL [Suspect]
     Dosage: 12.5 MG
  6. METFORMIN [Suspect]
     Dosage: 1 G, BID
  7. ASPIRIN [Suspect]
  8. INSULIN [Suspect]

REACTIONS (3)
  - Hyperkalaemia [Unknown]
  - Diabetes mellitus [Unknown]
  - Hypovolaemia [Unknown]
